FAERS Safety Report 7096006-7 (Version None)
Quarter: 2010Q4

REPORT INFORMATION
  Report Type: 
  Country: None (occurrence: None)
  Receive Date: 20101111
  Receipt Date: 20090509
  Transmission Date: 20110411
  Serious: No
  Sender: FDA-Public Use
  Company Number: US-KINGPHARMUSA00001-K200900577

PATIENT
  Sex: Female
  Weight: 48.526 kg

DRUGS (7)
  1. LEVOXYL [Suspect]
     Indication: BASEDOW'S DISEASE
     Dosage: 88 MCG, QD
     Route: 048
     Dates: start: 19970101, end: 20081001
  2. LEVOXYL [Suspect]
     Dosage: 75 MCG, QD
     Route: 048
     Dates: start: 20081001
  3. LEVOXYL [Suspect]
     Dosage: 75 MCG, QD
  4. ASACOL [Concomitant]
     Indication: CROHN'S DISEASE
     Dosage: UNK
  5. FOLIC ACID [Concomitant]
     Dosage: UNK
  6. PEPCID [Concomitant]
     Dosage: UNK
  7. XANAX [Concomitant]
     Dosage: UNK

REACTIONS (5)
  - DIZZINESS POSTURAL [None]
  - DYSPNOEA [None]
  - FEELING ABNORMAL [None]
  - HYPERTHYROIDISM [None]
  - PAIN [None]
